FAERS Safety Report 7298423-9 (Version None)
Quarter: 2011Q1

REPORT INFORMATION
  Report Type: 
  Country: None (occurrence: None)
  Receive Date: 20110217
  Receipt Date: 20110205
  Transmission Date: 20110831
  Serious: Yes (Death, Hospitalization)
  Sender: FDA-Public Use
  Company Number: DE-BAYER-2011-011888

PATIENT

DRUGS (2)
  1. SIROLIMUS [Concomitant]
     Dosage: 2 MG, QD
  2. NEXAVAR [Suspect]
     Indication: HEPATIC NEOPLASM MALIGNANT
     Route: 048

REACTIONS (3)
  - SEPSIS [None]
  - FATIGUE [None]
  - MULTI-ORGAN FAILURE [None]
